FAERS Safety Report 8443143-8 (Version None)
Quarter: 2012Q2

REPORT INFORMATION
  Report Type: 
  Country: None (occurrence: None)
  Receive Date: 20120615
  Receipt Date: 20120613
  Transmission Date: 20120825
  Serious: Yes (Hospitalization, Other)
  Sender: FDA-Public Use
  Company Number: US-MERCK-1106USA01394

PATIENT
  Age: 73 Year
  Sex: Female
  Weight: 55 kg

DRUGS (18)
  1. FOSAMAX [Suspect]
     Route: 048
     Dates: start: 20060101
  2. ALENDRONATE SODIUM [Suspect]
     Indication: PROPHYLAXIS
     Route: 048
     Dates: start: 20080401, end: 20120301
  3. BUSPAR [Concomitant]
     Route: 065
  4. DITROPAN [Concomitant]
     Route: 065
  5. TRAZODONE HYDROCHLORIDE [Concomitant]
     Route: 065
  6. CALCIUM CARBONATE [Concomitant]
     Route: 065
  7. ZYPREXA [Concomitant]
     Route: 065
     Dates: start: 20070109
  8. HALDOL [Concomitant]
     Route: 065
  9. COGENTIN [Concomitant]
     Route: 048
  10. FOSAMAX [Suspect]
     Indication: PROPHYLAXIS
     Route: 048
     Dates: start: 20010124, end: 20050914
  11. TRAMADOL HCL [Concomitant]
     Route: 065
  12. CALCIUM (UNSPECIFIED) [Concomitant]
     Route: 065
  13. PRILOSEC [Concomitant]
     Route: 048
  14. PHENERGAN HCL [Concomitant]
     Route: 065
  15. NITROFURANTOIN [Concomitant]
     Route: 065
  16. VICODIN [Concomitant]
     Route: 065
  17. FOSAMAX [Suspect]
     Route: 048
     Dates: start: 20000101
  18. DOCUSATE SODIUM [Concomitant]
     Route: 065

REACTIONS (56)
  - MENTAL STATUS CHANGES [None]
  - HEAD INJURY [None]
  - HAEMANGIOMA OF LIVER [None]
  - DIASTOLIC DYSFUNCTION [None]
  - HIATUS HERNIA [None]
  - RENAL CYST [None]
  - OSTEOARTHRITIS [None]
  - LEFT ATRIAL DILATATION [None]
  - ADVERSE DRUG REACTION [None]
  - ANAEMIA [None]
  - CEREBRAL INFARCTION [None]
  - ANXIETY [None]
  - CARDIOMYOPATHY [None]
  - SPINAL OSTEOARTHRITIS [None]
  - GASTROOESOPHAGEAL REFLUX DISEASE [None]
  - CARDIAC MURMUR [None]
  - OESOPHAGEAL ULCER [None]
  - CONTUSION [None]
  - OESOPHAGITIS [None]
  - MITRAL VALVE CALCIFICATION [None]
  - DEPRESSION [None]
  - HAEMORRHAGIC ANAEMIA [None]
  - URINARY TRACT INFECTION [None]
  - TOXIC ENCEPHALOPATHY [None]
  - GASTROINTESTINAL HAEMORRHAGE [None]
  - ELECTROLYTE IMBALANCE [None]
  - BACTERIAL TEST POSITIVE [None]
  - IMPAIRED HEALING [None]
  - CONSTIPATION [None]
  - FEMUR FRACTURE [None]
  - HYPERCALCAEMIA [None]
  - ATRIAL FIBRILLATION [None]
  - CEREBRAL ATROPHY [None]
  - CEREBRAL SMALL VESSEL ISCHAEMIC DISEASE [None]
  - DISLOCATION OF VERTEBRA [None]
  - MITRAL VALVE INCOMPETENCE [None]
  - POST PROCEDURAL HAEMORRHAGE [None]
  - HYPOVOLAEMIA [None]
  - AORTIC STENOSIS [None]
  - BLOOD URINE PRESENT [None]
  - INTERVERTEBRAL DISC DEGENERATION [None]
  - OSTEOPENIA [None]
  - KYPHOSIS [None]
  - HAEMATEMESIS [None]
  - FALL [None]
  - EXCORIATION [None]
  - CYSTITIS NONINFECTIVE [None]
  - DEMENTIA [None]
  - SCAPULA FRACTURE [None]
  - GASTRIC ULCER [None]
  - SINUS TACHYCARDIA [None]
  - BREAST MASS [None]
  - VOMITING [None]
  - HYPERLIPIDAEMIA [None]
  - HYPERCHOLESTEROLAEMIA [None]
  - DIVERTICULUM [None]
